FAERS Safety Report 5430892-9 (Version None)
Quarter: 2007Q3

REPORT INFORMATION
  Report Type: 
  Country: None (occurrence: None)
  Receive Date: 20070830
  Receipt Date: 20070215
  Transmission Date: 20080115
  Serious: No
  Sender: FDA-Public Use
  Company Number: A0634946A

PATIENT
  Age: 57 Year
  Sex: Male

DRUGS (3)
  1. WELLBUTRIN XL [Suspect]
     Indication: DEPRESSION
     Dosage: 450MG PER DAY
     Route: 048
     Dates: start: 20061022, end: 20070101
  2. LIPITOR [Concomitant]
  3. ASPIRIN [Concomitant]

REACTIONS (5)
  - CONSTIPATION [None]
  - HYPERHIDROSIS [None]
  - MICTURITION URGENCY [None]
  - POLLAKIURIA [None]
  - VISION BLURRED [None]
